FAERS Safety Report 6981420-8 (Version None)
Quarter: 2010Q3

REPORT INFORMATION
  Report Type: 
  Country: None (occurrence: None)
  Receive Date: 20100914
  Receipt Date: 20090826
  Transmission Date: 20110219
  Serious: Yes (Other)
  Sender: FDA-Public Use
  Company Number: US-BRISTOL-MYERS SQUIBB COMPANY-14760094

PATIENT

DRUGS (1)
  1. MEGACE [Suspect]

REACTIONS (1)
  - DEEP VEIN THROMBOSIS [None]
